FAERS Safety Report 6931236-3 (Version None)
Quarter: 2010Q3

REPORT INFORMATION
  Report Type: 
  Country: None (occurrence: None)
  Receive Date: 20100816
  Receipt Date: 20100803
  Transmission Date: 20110219
  Serious: Yes (Death)
  Sender: FDA-Public Use
  Company Number: 2010EU003755

PATIENT
  Age: 27 Year
  Sex: Female
  Weight: 95 kg

DRUGS (1)
  1. FK463 (MICAFUNGIN) INJECTION [Suspect]
     Indication: ANTIFUNGAL PROPHYLAXIS
     Dosage: 100 MG, /D, IV NOS
     Route: 042
     Dates: start: 20100422, end: 20100506

REACTIONS (2)
  - COMA HEPATIC [None]
  - HEPATIC ENCEPHALOPATHY [None]
